FAERS Safety Report 15767304 (Version 1)
Quarter: 2018Q4

REPORT INFORMATION
  Report Type: Spontaneous
  Country: CN (occurrence: CN)
  Receive Date: 20181227
  Receipt Date: 20181227
  Transmission Date: 20190205
  Serious: Yes (Other)
  Sender: FDA-Public Use
  Company Number: CN-ASTRAZENECA-2018SF70023

PATIENT
  Age: 60 Year
  Sex: Female

DRUGS (3)
  1. MORPHINE [Concomitant]
     Active Substance: MORPHINE
  2. TAGRISSO [Suspect]
     Active Substance: OSIMERTINIB
     Indication: NON-SMALL CELL LUNG CANCER
     Dosage: 1 TABLET
     Route: 048
  3. IRESSA [Suspect]
     Active Substance: GEFITINIB
     Route: 048

REACTIONS (4)
  - Non-small cell lung cancer [Unknown]
  - Coma [Not Recovered/Not Resolved]
  - Drug resistance [Unknown]
  - Disease progression [Unknown]

NARRATIVE: CASE EVENT DATE: 20181218
